FAERS Safety Report 14905566 (Version 1)
Quarter: 2018Q2

REPORT INFORMATION
  Report Type: Spontaneous
  Country: US (occurrence: US)
  Receive Date: 20180517
  Receipt Date: 20180517
  Transmission Date: 20180711
  Serious: No
  Sender: FDA-Public Use
  Company Number: US-SA-2018SA015018

PATIENT
  Age: 60 Year
  Sex: Male
  Weight: 89.81 kg

DRUGS (8)
  1. GLIMEPIRIDE. [Concomitant]
     Active Substance: GLIMEPIRIDE
     Indication: DIABETES MELLITUS
     Dosage: STRENGTH: 4 MG
     Route: 065
  2. LANTUS SOLOSTAR [Suspect]
     Active Substance: INSULIN GLARGINE
     Indication: TYPE 2 DIABETES MELLITUS
     Dosage: DOSE: 40-45 UNITS BASED ON BLOOD SUGAR
     Route: 051
     Dates: start: 20100101
  3. METFORMIN [Concomitant]
     Active Substance: METFORMIN HYDROCHLORIDE
     Indication: DIABETES MELLITUS
     Dosage: STRENGTH: 1000 MG
     Route: 065
     Dates: start: 198706
  4. SOLOSTAR [Suspect]
     Active Substance: DEVICE
     Indication: TYPE 2 DIABETES MELLITUS
     Dates: start: 2007
  5. SOLOSTAR [Suspect]
     Active Substance: DEVICE
     Indication: TYPE 2 DIABETES MELLITUS
     Dates: start: 2007
  6. LANTUS SOLOSTAR [Suspect]
     Active Substance: INSULIN GLARGINE
     Indication: TYPE 2 DIABETES MELLITUS
     Dosage: DOSE: 40-45 UNITS BASED ON BLOOD SUGAR
     Route: 051
     Dates: start: 20100101
  7. LISINOPRIL. [Concomitant]
     Active Substance: LISINOPRIL
     Indication: DIABETES MELLITUS
     Dosage: STRENGTH: 10 MG
     Route: 065
     Dates: start: 1995
  8. SIMVASTATIN. [Concomitant]
     Active Substance: SIMVASTATIN
     Indication: DIABETES MELLITUS
     Dosage: STRENGTH: 20 MG
     Route: 065
     Dates: start: 1995

REACTIONS (7)
  - Peripheral coldness [Unknown]
  - Treatment noncompliance [Unknown]
  - Blood glucose increased [Unknown]
  - Paraesthesia [Unknown]
  - Visual impairment [Unknown]
  - Hypoaesthesia [Unknown]
  - Sensory loss [Unknown]

NARRATIVE: CASE EVENT DATE: 20180116
